FAERS Safety Report 21693614 (Version 1)
Quarter: 2022Q4

REPORT INFORMATION
  Report Type: Spontaneous
  Country: ET (occurrence: ET)
  Receive Date: 20221207
  Receipt Date: 20221207
  Transmission Date: 20230113
  Serious: Yes (Other)
  Sender: FDA-Public Use
  Company Number: ET-SUN PHARMACEUTICAL INDUSTRIES LTD-2022RR-367316

PATIENT
  Age: 39 Year
  Sex: Female

DRUGS (10)
  1. CEFTRIAXONE [Suspect]
     Active Substance: CEFTRIAXONE
     Indication: Pneumonia bacterial
     Dosage: 1.5 MILLIGRAM, BID
     Route: 042
  2. AZITHROMYCIN [Suspect]
     Active Substance: AZITHROMYCIN
     Indication: Pneumonia bacterial
     Dosage: UNK
     Route: 065
  3. PREDNISOLONE [Suspect]
     Active Substance: PREDNISOLONE
     Indication: Angle closure glaucoma
     Dosage: 20 MILLIGRAM, DAILY
     Route: 048
  4. MEROPENEM [Suspect]
     Active Substance: MEROPENEM
     Indication: Mucormycosis
     Dosage: 1 GRAM, TID
     Route: 042
  5. MEROPENEM [Suspect]
     Active Substance: MEROPENEM
     Dosage: 2 GRAM, TID
     Route: 042
  6. TIMOLOL [Suspect]
     Active Substance: TIMOLOL
     Indication: Angle closure glaucoma
     Dosage: 0.5 PERCENT, BID
  7. ACETAZOLAMIDE [Suspect]
     Active Substance: ACETAZOLAMIDE
     Indication: Angle closure glaucoma
     Dosage: 250 MILLIGRAM, BID
     Route: 048
  8. DEXAMETHASONE [Suspect]
     Active Substance: DEXAMETHASONE
     Indication: Acute kidney injury
     Dosage: 6 MILLIGRAM, DAILY
     Route: 042
  9. DEXAMETHASONE [Suspect]
     Active Substance: DEXAMETHASONE
     Indication: Pneumonia bacterial
  10. TROPICAMIDE [Suspect]
     Active Substance: TROPICAMIDE
     Indication: Angle closure glaucoma
     Dosage: 1 PERCENT, TID

REACTIONS (2)
  - Drug ineffective [Not Recovered/Not Resolved]
  - Off label use [Unknown]
